FAERS Safety Report 4829871-1 (Version None)
Quarter: 2005Q4

REPORT INFORMATION
  Report Type: 
  Country: None (occurrence: None)
  Receive Date: 20051117
  Receipt Date: 20050919
  Transmission Date: 20060501
  Serious: Yes (Congenital Anomaly)
  Sender: FDA-Public Use
  Company Number: GB-ABBOTT-05P-167-0311364-00

PATIENT
  Sex: Male

DRUGS (1)
  1. EPILIM TABLETS [Suspect]
     Indication: DRUG EXPOSURE DURING PREGNANCY
     Route: 065

REACTIONS (10)
  - ABNORMAL BEHAVIOUR [None]
  - ANKYLOGLOSSIA CONGENITAL [None]
  - CONGENITAL NOSE MALFORMATION [None]
  - DEVELOPMENTAL DELAY [None]
  - FACIAL DYSMORPHISM [None]
  - FOETAL VALPROATE SYNDROME [None]
  - LEARNING DISABILITY [None]
  - MEMORY IMPAIRMENT [None]
  - PERSONALITY DISORDER [None]
  - SPEECH DISORDER DEVELOPMENTAL [None]
